FAERS Safety Report 15412885 (Version 2)
Quarter: 2019Q1

REPORT INFORMATION
  Report Type: Spontaneous
  Country: US (occurrence: US)
  Receive Date: 20180921
  Receipt Date: 20190104
  Transmission Date: 20190417
  Serious: Yes (Other)
  Sender: FDA-Public Use
  Company Number: US-BAYER-2018-173329

PATIENT
  Age: 81 Year
  Sex: Male

DRUGS (14)
  1. XOFIGO [Suspect]
     Active Substance: RADIUM RA-223 DICHLORIDE
     Dosage: 137.55UCI
     Route: 042
     Dates: start: 20180222, end: 20180222
  2. XOFIGO [Suspect]
     Active Substance: RADIUM RA-223 DICHLORIDE
     Dosage: 127.71 UCI
     Route: 042
     Dates: start: 20180419, end: 20180419
  3. METFORMIN [Concomitant]
     Active Substance: METFORMIN HYDROCHLORIDE
  4. XOFIGO [Suspect]
     Active Substance: RADIUM RA-223 DICHLORIDE
     Dosage: 126.16UCI
     Route: 042
     Dates: start: 20171228, end: 20171228
  5. ELIQUIS [Concomitant]
     Active Substance: APIXABAN
  6. NORVASC [Concomitant]
     Active Substance: AMLODIPINE BESYLATE
  7. ATORVASTATIN [Concomitant]
     Active Substance: ATORVASTATIN
  8. TIZANIDINE. [Concomitant]
     Active Substance: TIZANIDINE
  9. XOFIGO [Suspect]
     Active Substance: RADIUM RA-223 DICHLORIDE
     Dosage: 129.42UCI
     Route: 042
     Dates: start: 20180517, end: 20180517
  10. ZANAFLEX [Concomitant]
     Active Substance: TIZANIDINE HYDROCHLORIDE
  11. XOFIGO [Suspect]
     Active Substance: RADIUM RA-223 DICHLORIDE
     Dosage: 127.09 UCI
     Route: 042
     Dates: start: 20171130, end: 20171130
  12. XOFIGO [Suspect]
     Active Substance: RADIUM RA-223 DICHLORIDE
     Dosage: 130.61UCI
     Route: 042
     Dates: start: 20180322, end: 20180322
  13. LOSARTAN. [Concomitant]
     Active Substance: LOSARTAN
  14. TAMSULOSIN [Concomitant]
     Active Substance: TAMSULOSIN

REACTIONS (2)
  - Metastases to bone [None]
  - Osteosclerosis [None]

NARRATIVE: CASE EVENT DATE: 20180810
